FAERS Safety Report 18172606 (Version 3)
Quarter: 2020Q4

REPORT INFORMATION
  Report Type: Report from Study
  Country: US (occurrence: US)
  Receive Date: 20200820
  Receipt Date: 20201102
  Transmission Date: 20210113
  Serious: No
  Sender: FDA-Public Use
  Company Number: US-B.I. PHARMACEUTICALS,INC./RIDGEFIELD-2020-US-042991

PATIENT
  Age: 83 Year
  Sex: Female

DRUGS (2)
  1. OFEV [Suspect]
     Active Substance: NINTEDANIB
     Indication: IDIOPATHIC PULMONARY FIBROSIS
     Dosage: 150MG BID
     Route: 048
     Dates: start: 20200814
  2. OFEV [Suspect]
     Active Substance: NINTEDANIB
     Route: 048

REACTIONS (8)
  - Nausea [Not Recovered/Not Resolved]
  - Insomnia [Unknown]
  - Nausea [Recovered/Resolved]
  - Dyspepsia [Recovered/Resolved]
  - Constipation [Unknown]
  - Decreased appetite [Unknown]
  - Asthenia [Unknown]
  - Headache [Recovered/Resolved]

NARRATIVE: CASE EVENT DATE: 20200818
